FAERS Safety Report 5076966-6 (Version None)
Quarter: 2006Q3

REPORT INFORMATION
  Report Type: 
  Country: None (occurrence: None)
  Receive Date: 20060810
  Receipt Date: 20060809
  Transmission Date: 20061208
  Serious: Yes (Other)
  Sender: FDA-Public Use
  Company Number: US-GLAXOSMITHKLINE-A0616056A

PATIENT
  Sex: Female

DRUGS (2)
  1. COMBIVIR [Suspect]
     Route: 048
  2. VIRACEPT [Concomitant]
     Route: 048

REACTIONS (2)
  - PREMATURE LABOUR [None]
  - PREMATURE RUPTURE OF MEMBRANES [None]
